FAERS Safety Report 25039664 (Version 3)
Quarter: 2025Q2

REPORT INFORMATION
  Report Type: Spontaneous
  Country: CH (occurrence: CH)
  Receive Date: 20250305
  Receipt Date: 20250429
  Transmission Date: 20250716
  Serious: Yes (Other)
  Sender: ROCHE
  Company Number: CH-ROCHE-10000218980

PATIENT
  Sex: Male

DRUGS (8)
  1. BEVACIZUMAB [Suspect]
     Active Substance: BEVACIZUMAB
     Indication: Rectal cancer metastatic
     Route: 065
  2. FLUOROURACIL [Suspect]
     Active Substance: FLUOROURACIL
     Indication: Rectal cancer metastatic
     Route: 065
  3. LEUCOVORIN CALCIUM [Concomitant]
     Active Substance: LEUCOVORIN CALCIUM
     Dates: start: 202303
  4. OXALIPLATIN [Concomitant]
     Active Substance: OXALIPLATIN
     Dates: start: 202303, end: 202308
  5. CETUXIMAB [Concomitant]
     Active Substance: CETUXIMAB
     Dates: start: 202303, end: 202308
  6. IRINOTECAN HYDROCHLORIDE [Concomitant]
     Active Substance: IRINOTECAN HYDROCHLORIDE
  7. AFLIBERCEPT [Concomitant]
     Active Substance: AFLIBERCEPT
  8. Trifluridine Tipiracil [Concomitant]

REACTIONS (1)
  - Rectal cancer metastatic [Unknown]
